FAERS Safety Report 4776689-4 (Version None)
Quarter: 2005Q3

REPORT INFORMATION
  Report Type: 
  Country: None (occurrence: None)
  Receive Date: 20050923
  Receipt Date: 20050912
  Transmission Date: 20060218
  Serious: Yes (Death, Hospitalization)
  Sender: FDA-Public Use
  Company Number: US-JNJFOC-20030702406

PATIENT
  Sex: Male

DRUGS (8)
  1. INFLIXIMAB [Suspect]
     Route: 042
  2. INFLIXIMAB [Suspect]
     Indication: RHEUMATOID ARTHRITIS
     Route: 042
  3. METHOTREXATE [Concomitant]
  4. FOLIC ACID [Concomitant]
  5. TYLENOL [Concomitant]
  6. CALCIUM WITH D [Concomitant]
  7. CALCIUM WITH D [Concomitant]
  8. CALCIUM WITH D [Concomitant]

REACTIONS (2)
  - ACUTE MYELOID LEUKAEMIA [None]
  - ANAEMIA [None]
